FAERS Safety Report 8815326 (Version 3)
Quarter: 2013Q1

REPORT INFORMATION
  Report Type: Report from Study
  Country: JP (occurrence: JP)
  Receive Date: 20120928
  Receipt Date: 20130103
  Transmission Date: 20140127
  Serious: Yes (Hospitalization)
  Sender: FDA-Public Use
  Company Number: JP-B.I. PHARMACEUTICALS,INC./RIDGEFIELD-2012-BP-21217NB

PATIENT
  Age: 79 Year
  Sex: Male
  Weight: 54 kg

DRUGS (3)
  1. MICAMLO COMBINATION [Suspect]
     Indication: HYPERTENSION
     Route: 048
     Dates: start: 20110721, end: 20111124
  2. WARFARIN [Concomitant]
     Indication: PROPHYLAXIS
     Dosage: 2.5 MG
     Route: 048
  3. ZYLORIC [Concomitant]
     Dosage: 100 MG
     Route: 048

REACTIONS (1)
  - Intestinal obstruction [Unknown]
